FAERS Safety Report 5983728-1 (Version None)
Quarter: 2008Q4

REPORT INFORMATION
  Report Type: 
  Country: None (occurrence: None)
  Receive Date: 20081205
  Receipt Date: 20081205
  Transmission Date: 20090506
  Serious: Yes (Hospitalization, Other)
  Sender: FDA-Public Use
  Company Number: None

PATIENT
  Age: 50 Year
  Sex: Female

DRUGS (1)
  1. DOCETAXEL [Suspect]
     Indication: NEOPLASM MALIGNANT
     Dosage: 129 MG ONCE IV
     Route: 042
     Dates: start: 20081202, end: 20081202

REACTIONS (10)
  - CHEST DISCOMFORT [None]
  - FEELING ABNORMAL [None]
  - FLUSHING [None]
  - HYPERTENSION [None]
  - MUSCLE SPASMS [None]
  - MYALGIA [None]
  - OPISTHOTONUS [None]
  - REACTION TO DRUG EXCIPIENTS [None]
  - RESPIRATORY DEPRESSION [None]
  - TACHYCARDIA [None]
